FAERS Safety Report 10142568 (Version 1)
Quarter: 2014Q2

REPORT INFORMATION
  Report Type: Spontaneous
  Country: CA (occurrence: CA)
  Receive Date: 20140430
  Receipt Date: 20140430
  Transmission Date: 20141212
  Serious: Yes (Other)
  Sender: FDA-Public Use
  Company Number: CA-ROCHE-1389027

PATIENT
  Age: 60 Year
  Sex: Female

DRUGS (8)
  1. XELODA [Suspect]
     Indication: PRODUCT USED FOR UNKNOWN INDICATION
     Route: 065
  2. TYKERB [Suspect]
     Indication: PRODUCT USED FOR UNKNOWN INDICATION
     Dosage: THERAPY DURATION:  11.0 DAY(S)
     Route: 048
  3. TYKERB [Suspect]
     Dosage: THERAPY DURATION:  14.0 DAY(S)
     Route: 065
  4. TYKERB [Suspect]
     Route: 065
  5. ADVAIR [Concomitant]
  6. ADVIL [Concomitant]
  7. NASONEX [Concomitant]
     Route: 065
  8. PRIMAX [Concomitant]

REACTIONS (7)
  - Abdominal pain [Not Recovered/Not Resolved]
  - Bone pain [Not Recovered/Not Resolved]
  - Breast cancer metastatic [Not Recovered/Not Resolved]
  - Diarrhoea [Not Recovered/Not Resolved]
  - Malignant neoplasm progression [Not Recovered/Not Resolved]
  - Muscular weakness [Not Recovered/Not Resolved]
  - Sinusitis [Not Recovered/Not Resolved]
